FAERS Safety Report 15375560 (Version 1)
Quarter: 2018Q3

REPORT INFORMATION
  Report Type: Spontaneous
  Country: US (occurrence: US)
  Receive Date: 20180906
  Receipt Date: 20180906
  Transmission Date: 20181010
  Serious: Yes (Hospitalization)
  Sender: FDA-Public Use
  Company Number: None

PATIENT
  Sex: Male

DRUGS (20)
  1. SERTRALINE [Concomitant]
     Active Substance: SERTRALINE HYDROCHLORIDE
  2. FINASTERIDE. [Concomitant]
     Active Substance: FINASTERIDE
  3. BENZONATATE. [Concomitant]
     Active Substance: BENZONATATE
  4. VIRTUSSIN AC [Concomitant]
     Active Substance: CODEINE PHOSPHATE\GUAIFENESIN
  5. SIMVASTATIN. [Concomitant]
     Active Substance: SIMVASTATIN
  6. DOXYCYCL HYC [Concomitant]
  7. MEKINIST [Suspect]
     Active Substance: TRAMETINIB DIMETHYL SULFOXIDE
     Indication: PLASMA CELL MYELOMA
     Route: 048
     Dates: start: 20180814
  8. TIZANIDINE. [Concomitant]
     Active Substance: TIZANIDINE
  9. BASAGLAR [Concomitant]
     Active Substance: INSULIN GLARGINE
  10. ENOXAPARIN [Concomitant]
     Active Substance: ENOXAPARIN
  11. ALBUTEROL. [Concomitant]
     Active Substance: ALBUTEROL
  12. ONETOUCH [Concomitant]
  13. HUMALOG [Concomitant]
     Active Substance: INSULIN LISPRO
  14. VALACYCLOVIR [Concomitant]
     Active Substance: VALACYCLOVIR HYDROCHLORIDE
  15. DEXAMETHASON [Concomitant]
     Active Substance: DEXAMETHASONE
  16. POMALYST [Concomitant]
     Active Substance: POMALIDOMIDE
  17. LEVOTHYROXIN [Concomitant]
     Active Substance: LEVOTHYROXINE
  18. PANTOPRAZOLE [Concomitant]
     Active Substance: PANTOPRAZOLE
  19. PROVENTIL [Concomitant]
     Active Substance: ALBUTEROL
  20. TAFINLAR [Suspect]
     Active Substance: DABRAFENIB MESYLATE
     Indication: PLASMA CELL MYELOMA
     Route: 048
     Dates: start: 20180822

REACTIONS (1)
  - Pulmonary oedema [None]
